FAERS Safety Report 18877394 (Version 1)
Quarter: 2021Q1

REPORT INFORMATION
  Report Type: Spontaneous
  Country: US (occurrence: US)
  Receive Date: 20210211
  Receipt Date: 20210211
  Transmission Date: 20210420
  Serious: Yes (Hospitalization)
  Sender: FDA-Public Use
  Company Number: US-EMCURE PHARMACEUTICALS LTD-2021-EPL-000405

PATIENT
  Age: 78 Year
  Sex: Male

DRUGS (5)
  1. LEVOFLOXACIN. [Suspect]
     Active Substance: LEVOFLOXACIN
     Indication: LARGE INTESTINE INFECTION
     Dosage: 750 MILLIGRAM DAILY FOR FIVE DAYS
  2. GLIMEPIRIDE. [Concomitant]
     Active Substance: GLIMEPIRIDE
  3. FUROSEMIDE. [Concomitant]
     Active Substance: FUROSEMIDE
  4. SODIUM BICARBONATE. [Concomitant]
     Active Substance: SODIUM BICARBONATE
  5. OLMESARTAN [Concomitant]
     Active Substance: OLMESARTAN

REACTIONS (5)
  - Arthralgia [Recovering/Resolving]
  - Rotator cuff syndrome [Recovering/Resolving]
  - Inflammatory marker increased [Recovering/Resolving]
  - Angiotensin converting enzyme increased [Recovering/Resolving]
  - Joint range of motion decreased [Recovering/Resolving]
